FAERS Safety Report 6027516-9 (Version None)
Quarter: 2009Q1

REPORT INFORMATION
  Report Type: 
  Country: None (occurrence: None)
  Receive Date: 20090105
  Receipt Date: 20081223
  Transmission Date: 20090719
  Serious: Yes (Life-Threatening)
  Sender: FDA-Public Use
  Company Number: AE-ROCHE-604789

PATIENT
  Age: 44 Year
  Sex: Female

DRUGS (1)
  1. PEGASYS [Suspect]
     Dosage: FORM: PREFILLED
     Route: 058
     Dates: start: 20081116, end: 20081221

REACTIONS (2)
  - DEEP VEIN THROMBOSIS [None]
  - MUSCULOSKELETAL PAIN [None]
